FAERS Safety Report 6570110-1 (Version None)
Quarter: 2010Q1

REPORT INFORMATION
  Report Type: 
  Country: None (occurrence: None)
  Receive Date: 20100202
  Receipt Date: 20100202
  Transmission Date: 20100710
  Serious: Yes (Death, Hospitalization)
  Sender: FDA-Public Use
  Company Number: None

PATIENT
  Sex: Female
  Weight: 45.3597 kg

DRUGS (1)
  1. ORAL DIGITEK 0.25 ACTAVIS TOTOWA, LLC [Suspect]
     Indication: CARDIAC DISORDER
     Dosage: 0.25 DAILY PO, ESTIMATE, TAKEN FOR YEARS
     Route: 048
     Dates: start: 19850120, end: 20080430

REACTIONS (2)
  - CEREBROVASCULAR ACCIDENT [None]
  - PRODUCT QUALITY ISSUE [None]
